FAERS Safety Report 13359931 (Version 1)
Quarter: 2017Q1

REPORT INFORMATION
  Report Type: Spontaneous
  Country: US (occurrence: US)
  Receive Date: 20170322
  Receipt Date: 20170322
  Transmission Date: 20170429
  Serious: Yes (Hospitalization)
  Sender: FDA-Public Use
  Company Number: US-ASTRAZENECA-2017SE28939

PATIENT
  Age: 670 Month
  Sex: Male

DRUGS (2)
  1. ZETIA [Concomitant]
     Active Substance: EZETIMIBE
  2. BRILINTA [Suspect]
     Active Substance: TICAGRELOR
     Indication: MYOCARDIAL INFARCTION
     Route: 048
     Dates: start: 20160122

REACTIONS (4)
  - Myocardial infarction [Unknown]
  - Off label use [Unknown]
  - Cardiac arrest [Unknown]
  - Arteriosclerosis [Unknown]

NARRATIVE: CASE EVENT DATE: 201610
